FAERS Safety Report 8590754 (Version 7)
Quarter: 2012Q4

REPORT INFORMATION
  Report Type: 
  Country: US (occurrence: US)
  Receive Date: 20120601
  Receipt Date: 20121012
  Transmission Date: 20130627
  Serious: Yes (Other)
  Sender: FDA-Public Use
  Company Number: US-SHIONOGI, INC-2012000175

PATIENT

DRUGS (7)
  1. ULESFIA [Suspect]
     Indication: LICE INFESTATION
     Dosage: 5 %, UNK
     Route: 061
     Dates: start: 20120514, end: 20120514
  2. MULTIVITAMIN [Concomitant]
  3. ORAL CONTRACEPTIVE NOS [Concomitant]
  4. PERMETHRIN [Concomitant]
     Dosage: UNK
     Dates: start: 201205
  5. TEA TREE OIL [Concomitant]
     Dosage: UNK
     Dates: start: 201205
  6. OLIVE OIL [Concomitant]
     Dosage: UNK
     Dates: start: 201205
  7. RID [Suspect]

REACTIONS (14)
  - Dyspnoea [Recovered/Resolved]
  - Chest pain [Recovered/Resolved]
  - Palpitations [Not Recovered/Not Resolved]
  - Hallucination [Recovering/Resolving]
  - Sluggishness [Recovered/Resolved]
  - Feeling abnormal [Recovered/Resolved]
  - Abnormal dreams [Recovered/Resolved]
  - Cognitive disorder [Recovering/Resolving]
  - Restlessness [Recovering/Resolving]
  - Nausea [Recovering/Resolving]
  - Malaise [Recovering/Resolving]
  - Drug ineffective [Not Recovered/Not Resolved]
  - Hypoaesthesia [Recovered/Resolved]
  - Paraesthesia [Recovered/Resolved]
